FAERS Safety Report 13453905 (Version 4)
Quarter: 2019Q1

REPORT INFORMATION
  Report Type: Report from Study
  Country: US (occurrence: US)
  Receive Date: 20170418
  Receipt Date: 20190330
  Transmission Date: 20190417
  Serious: Yes (Other)
  Sender: FDA-Public Use
  Company Number: PHHY2017US008488

PATIENT
  Age: 50 Year
  Sex: Female

DRUGS (1)
  1. GILENYA [Suspect]
     Active Substance: FINGOLIMOD HYDROCHLORIDE
     Indication: MULTIPLE SCLEROSIS
     Dosage: UNK, QD
     Route: 048

REACTIONS (14)
  - Muscle spasticity [Not Recovered/Not Resolved]
  - Oral candidiasis [Unknown]
  - Migraine [Unknown]
  - Alanine aminotransferase increased [Not Recovered/Not Resolved]
  - Muscle twitching [Recovered/Resolved]
  - Fatigue [Not Recovered/Not Resolved]
  - Lumbosacral plexopathy [Not Recovered/Not Resolved]
  - Radiculopathy [Unknown]
  - Headache [Unknown]
  - Pain in extremity [Unknown]
  - Lymphocyte count decreased [Unknown]
  - Non-cardiac chest pain [Recovered/Resolved]
  - Eye pain [Unknown]
  - Muscle fatigue [Unknown]

NARRATIVE: CASE EVENT DATE: 20161215
